FAERS Safety Report 25998058 (Version 1)
Quarter: 2025Q4

REPORT INFORMATION
  Report Type: Spontaneous
  Country: GB (occurrence: GB)
  Receive Date: 20251105
  Receipt Date: 20251105
  Transmission Date: 20260117
  Serious: Yes (Disabling, Other)
  Sender: AUROBINDO
  Company Number: GB-MHRA-MED-202510231005180090-KTBJV

PATIENT
  Sex: Male
  Weight: 82 kg

DRUGS (1)
  1. APIXABAN [Suspect]
     Active Substance: APIXABAN
     Indication: Adverse drug reaction
     Dosage: 5 MILLIGRAM
     Route: 065

REACTIONS (2)
  - Depression [Recovered/Resolved]
  - Medication error [Unknown]
